FAERS Safety Report 8542099-7 (Version None)
Quarter: 2012Q3

REPORT INFORMATION
  Report Type: 
  Country: None (occurrence: None)
  Receive Date: 20120726
  Receipt Date: 20111021
  Transmission Date: 20120928
  Serious: No
  Sender: FDA-Public Use
  Company Number: US-ASTRAZENECA-2011SE63682

PATIENT
  Age: 75 Year
  Sex: Female

DRUGS (4)
  1. SEROQUEL [Suspect]
     Route: 048
  2. SEROQUEL [Suspect]
     Indication: DEPRESSION
     Route: 048
  3. BEPHOSPHONATE [Suspect]
     Route: 065
  4. SEROQUEL [Suspect]
     Dosage: TITRATING FROM 50 MG TO 100 MG
     Route: 048

REACTIONS (3)
  - FALL [None]
  - FACE INJURY [None]
  - DYSKINESIA [None]
